FAERS Safety Report 23300713 (Version 1)
Quarter: 2023Q4

REPORT INFORMATION
  Report Type: Spontaneous
  Country: CN (occurrence: CN)
  Receive Date: 20231215
  Receipt Date: 20231215
  Transmission Date: 20240110
  Serious: Yes (Hospitalization, Other)
  Sender: FDA-Public Use
  Company Number: CN-SANDOZ-SDZ2023CN062754

PATIENT
  Age: 65 Year
  Sex: Male
  Weight: 65 kg

DRUGS (4)
  1. SULBACTAM SODIUM [Suspect]
     Active Substance: SULBACTAM SODIUM
     Indication: Bronchopulmonary aspergillosis
     Dosage: 3 G, TID
     Route: 065
  2. VORICONAZOLE [Suspect]
     Active Substance: VORICONAZOLE
     Dosage: 0.2 G, BID
     Route: 065
     Dates: start: 20210716
  3. VORICONAZOLE [Suspect]
     Active Substance: VORICONAZOLE
     Indication: Bronchopulmonary aspergillosis
     Dosage: 0.4 G, BID
     Route: 065
  4. VORICONAZOLE [Suspect]
     Active Substance: VORICONAZOLE
     Dosage: UNK
     Route: 065
     Dates: start: 20210722

REACTIONS (3)
  - Aspergillus infection [Unknown]
  - Condition aggravated [Unknown]
  - Therapeutic response decreased [Unknown]

NARRATIVE: CASE EVENT DATE: 20210713
